FAERS Safety Report 8742910 (Version 4)
Quarter: 2013Q1

REPORT INFORMATION
  Report Type: Report from Study
  Country: JP (occurrence: JP)
  Receive Date: 20120824
  Receipt Date: 20130212
  Transmission Date: 20140127
  Serious: Yes (Hospitalization, Other)
  Sender: FDA-Public Use
  Company Number: JP-009507513-2012SP029625

PATIENT
  Age: 66 Year
  Sex: Male
  Weight: 59 kg

DRUGS (22)
  1. PEGINTRON [Suspect]
     Indication: CHRONIC HEPATITIS C
     Dosage: 1.5 MICROGRAM PER KILOGRAM, QW
     Route: 058
     Dates: start: 20120319, end: 20120514
  2. PEGINTRON [Suspect]
     Dosage: 1.5 MICROGRAM PER KILOGRAM, QW
     Route: 058
     Dates: start: 20120524
  3. REBETOL [Suspect]
     Indication: CHRONIC HEPATITIS C
     Dosage: 600 MG, QD
     Route: 048
     Dates: start: 20120319, end: 20120429
  4. REBETOL [Suspect]
     Dosage: 400 MG, QD
     Route: 048
     Dates: start: 20120430, end: 20120506
  5. REBETOL [Suspect]
     Dosage: 200 MG, QD
     Route: 048
     Dates: start: 20120507, end: 20120529
  6. REBETOL [Suspect]
     Dosage: 600 MG, QD
     Route: 048
     Dates: start: 20120530, end: 20120612
  7. REBETOL [Suspect]
     Dosage: 400 MG, QD
     Route: 048
     Dates: start: 20120613, end: 20120724
  8. REBETOL [Suspect]
     Dosage: 600 MG, QD
     Route: 048
     Dates: start: 20120725
  9. TELAVIC [Suspect]
     Indication: CHRONIC HEPATITIS C
     Dosage: 2250 MG, QD
     Route: 048
     Dates: start: 20120319, end: 20120514
  10. URSO [Concomitant]
     Indication: CHRONIC HEPATITIS C
     Dosage: 900 MG, QD, FORMULATION:POR
     Route: 048
  11. URSO [Concomitant]
     Dosage: 900 MG, ONCE
     Route: 048
  12. DIOVAN [Concomitant]
     Indication: HYPERTENSION
     Dosage: 40 MG, QD, FORMULATION:POR
     Route: 048
  13. DIOVAN [Concomitant]
     Dosage: 40 MG, QD,POR
     Route: 048
  14. NORVASC [Concomitant]
     Indication: HYPERTENSION
     Dosage: 2.5 MG, QD, FORMULATION:POR
     Route: 048
  15. ACINON [Concomitant]
     Indication: PROPHYLAXIS
     Dosage: 150 MG, QD, FORMULATION: POR
     Route: 048
  16. DICLOFENAC [Concomitant]
     Indication: PYREXIA
     Dosage: 25 MG, PRN
     Route: 054
     Dates: start: 20120320
  17. ZYLORIC [Concomitant]
     Indication: HYPERURICAEMIA
     Dosage: 100 MG, QD
     Route: 048
     Dates: start: 20120416, end: 20120422
  18. PRIMPERAN [Concomitant]
     Indication: PROPHYLAXIS
     Dosage: 5 MG, QD, FORMULATION: POR
     Route: 048
     Dates: start: 20120416
  19. LOXONIN [Concomitant]
     Dosage: 60 MG, QD
     Route: 048
     Dates: start: 20120423
  20. OLMETEC [Concomitant]
     Indication: HYPERTENSION
     Dosage: 10 MG, QD
     Route: 048
  21. NORVASC OD [Concomitant]
     Indication: HYPERTENSION
     Dosage: 2.5 MG, QD
     Route: 048
  22. TAKEPRON [Concomitant]
     Dosage: 15 MG, QD
     Route: 048

REACTIONS (3)
  - Erythema multiforme [Recovering/Resolving]
  - Haemoglobin decreased [Recovered/Resolved]
  - Haemoglobin decreased [Unknown]
